FAERS Safety Report 6887476-5 (Version None)
Quarter: 2010Q3

REPORT INFORMATION
  Report Type: 
  Country: None (occurrence: None)
  Receive Date: 20100730
  Receipt Date: 20100721
  Transmission Date: 20110219
  Serious: Yes (Other)
  Sender: FDA-Public Use
  Company Number: BR-PFIZER INC-2010091259

PATIENT
  Age: 67 Year
  Sex: Female

DRUGS (5)
  1. CITALOR [Suspect]
     Dosage: UNK
     Route: 048
     Dates: start: 20070301
  2. XALATAN [Concomitant]
     Dosage: UNK
     Dates: start: 20100318
  3. COSOPT [Concomitant]
     Dosage: UNK
  4. IRBESARTAN [Concomitant]
  5. HYDROCHLOROTHIAZIDE [Concomitant]

REACTIONS (2)
  - NEURITIS [None]
  - TENDONITIS [None]
